FAERS Safety Report 24445614 (Version 1)
Quarter: 2024Q4

REPORT INFORMATION
  Report Type: Spontaneous
  Country: US (occurrence: US)
  Receive Date: 20241016
  Receipt Date: 20241016
  Transmission Date: 20250115
  Serious: No
  Sender: Unknown Manufacturer
  Company Number: US-SHIELD THERAPEUTICS-US-STX-24-00111

PATIENT
  Age: 57 Year
  Sex: Female

DRUGS (1)
  1. ACCRUFER [Suspect]
     Active Substance: FERRIC MALTOL
     Indication: Product used for unknown indication
     Dosage: 30 MILLIGRAM, BID
     Route: 048
     Dates: start: 20240516, end: 20240530

REACTIONS (1)
  - Gastrointestinal pain [Unknown]
